FAERS Safety Report 13593670 (Version 2)
Quarter: 2017Q3

REPORT INFORMATION
  Report Type: Spontaneous
  Country: JP (occurrence: JP)
  Receive Date: 20170530
  Receipt Date: 20170725
  Transmission Date: 20171127
  Serious: Yes (Hospitalization, Other)
  Sender: FDA-Public Use
  Company Number: JP-ELI_LILLY_AND_COMPANY-JP201705007943

PATIENT
  Age: 65 Year
  Sex: Female
  Weight: 38 kg

DRUGS (3)
  1. IRINOTECAN [Concomitant]
     Active Substance: IRINOTECAN
     Indication: GASTRIC CANCER RECURRENT
     Dosage: 205 MG, UNK
     Route: 042
     Dates: start: 20161115, end: 20170124
  2. CYRAMZA [Suspect]
     Active Substance: RAMUCIRUMAB
     Indication: GASTRIC CANCER RECURRENT
     Dosage: 340 MG, OTHER
     Route: 041
     Dates: start: 20160809, end: 20161018
  3. PACLITAXEL. [Concomitant]
     Active Substance: PACLITAXEL
     Indication: GASTRIC CANCER RECURRENT
     Dosage: 110 MG, OTHER
     Route: 041
     Dates: start: 20160809, end: 20161018

REACTIONS (3)
  - Hypertension [Unknown]
  - Malignant neoplasm progression [Unknown]
  - Putamen haemorrhage [Recovering/Resolving]

NARRATIVE: CASE EVENT DATE: 2016
